FAERS Safety Report 7529900-0 (Version None)
Quarter: 2011Q2

REPORT INFORMATION
  Report Type: 
  Country: None (occurrence: None)
  Receive Date: 20110607
  Receipt Date: 20110523
  Transmission Date: 20111010
  Serious: No
  Sender: FDA-Public Use
  Company Number: US-B.I. PHARMACEUTICALS,INC./RIDGEFIELD-2011-BP-13799BP

PATIENT
  Age: 63 Year
  Sex: Female

DRUGS (9)
  1. LEXAPRO [Concomitant]
     Indication: ANXIETY
  2. HYDROCHLOROTHIAZIDE [Concomitant]
     Indication: HYPERTENSION
  3. ASPIRIN [Concomitant]
     Indication: PROPHYLAXIS
  4. LOVAZA [Concomitant]
     Indication: BLOOD CHOLESTEROL INCREASED
  5. PRADAXA [Suspect]
     Indication: ATRIAL FIBRILLATION
     Dosage: 300 MG
     Route: 048
     Dates: start: 20110501, end: 20110501
  6. BYSTOLIC [Concomitant]
     Indication: ATRIAL FIBRILLATION
  7. WELCHOL [Concomitant]
     Indication: BLOOD CHOLESTEROL INCREASED
  8. ZETIA [Concomitant]
     Indication: BLOOD CHOLESTEROL INCREASED
  9. XANAX [Concomitant]
     Indication: ANXIETY

REACTIONS (3)
  - OEDEMA MOUTH [None]
  - FACIAL PAIN [None]
  - HEADACHE [None]
